FAERS Safety Report 11272033 (Version 1)
Quarter: 2015Q3

REPORT INFORMATION
  Report Type: Report from Study
  Country: CA (occurrence: None)
  Receive Date: 20150713
  Receipt Date: 20150713
  Transmission Date: 20151125
  Serious: Yes (Hospitalization, Other)
  Sender: FDA-Public Use
  Company Number: 2014FE03095

PATIENT
  Age: 73 Year
  Sex: Male

DRUGS (26)
  1. DEGARELIX (DEGARELIX) POWDER AND SOLVENT FOR SOLUTION FOR INJECTION [Suspect]
     Active Substance: DEGARELIX
     Indication: PROSTATE CANCER
     Route: 058
     Dates: start: 20140312
  2. IPRATROPIUM (IPRATROPIUM) [Concomitant]
  3. SYSTANE (MACROGOL 400, PROPYLENE GLYCOL) [Concomitant]
  4. GLYCERIN /01736901/ (GLYCEROL) SUPPOSITORY [Concomitant]
  5. EURO FOLIC (FOLIC ACID) [Concomitant]
  6. GABAPENTIN. [Concomitant]
     Active Substance: GABAPENTIN
  7. CARBOCAL D (COLECALCIFEROL) [Concomitant]
  8. ATACAND [Concomitant]
     Active Substance: CANDESARTAN CILEXETIL
  9. ELIGARD (LEUPRORELIC ACETATE) [Concomitant]
  10. BICALUTAMIDE. [Concomitant]
     Active Substance: BICALUTAMIDE
  11. SPIRIVA [Concomitant]
     Active Substance: TIOTROPIUM BROMIDE MONOHYDRATE
  12. SALVENT /00139501/ (SALBUTAMOL) [Concomitant]
  13. FENTANYL (FENTANYL) [Concomitant]
     Active Substance: FENTANYL
  14. OXAZEPAM (OXAZEPAM) [Concomitant]
     Active Substance: OXAZEPAM
  15. AMCINONIDE (AMCINONIDE) [Concomitant]
  16. ZYTIGA (ABIRATERONE ACETATE) [Concomitant]
  17. COLACE [Concomitant]
     Active Substance: DOCUSATE SODIUM
  18. SENOKOT /00142201/ (SENNA ALEXANDRINA) [Concomitant]
  19. PANTOLOC / 01263204/ (PANTOPRAZOLE SODIUM SESQUIHYDRATE) [Concomitant]
  20. PREDNISONE. [Concomitant]
     Active Substance: PREDNISONE
  21. MG (MAGNESIUM SULFATE) [Concomitant]
  22. DILAUDID [Concomitant]
     Active Substance: HYDROMORPHONE HYDROCHLORIDE
  23. ASPIRIN. [Concomitant]
     Active Substance: ASPIRIN
  24. D-TABS (COLECALCIFEROL) [Concomitant]
  25. CARBAMAZEPINE. [Concomitant]
     Active Substance: CARBAMAZEPINE
  26. FLOVENT [Concomitant]
     Active Substance: FLUTICASONE PROPIONATE

REACTIONS (3)
  - Fall [None]
  - Prostatic specific antigen increased [None]
  - Dyspnoea [None]
